FAERS Safety Report 8344770-9 (Version None)
Quarter: 2012Q2

REPORT INFORMATION
  Report Type: 
  Country: None (occurrence: None)
  Receive Date: 20120402
  Receipt Date: 20110715
  Transmission Date: 20120825
  Serious: Yes (Disabling, Other)
  Sender: FDA-Public Use
  Company Number: 290937USA

PATIENT
  Sex: Female

DRUGS (2)
  1. ALENDRONATE SODIUM [Suspect]
  2. ALENDRONIC ACID [Suspect]

REACTIONS (2)
  - FEMUR FRACTURE [None]
  - BONE DISORDER [None]
